FAERS Safety Report 9341093 (Version 1)
Quarter: 2013Q2

REPORT INFORMATION
  Report Type: Spontaneous
  Country: US (occurrence: US)
  Receive Date: 20130610
  Receipt Date: 20130610
  Transmission Date: 20140414
  Serious: No
  Sender: FDA-Public Use
  Company Number: US-009507513-1306USA003384

PATIENT
  Sex: Female
  Weight: 46.71 kg

DRUGS (2)
  1. NEXPLANON [Suspect]
     Dosage: 1 ROD
     Route: 059
     Dates: start: 20130603
  2. NEXPLANON [Suspect]
     Dosage: 1 ROD
     Dates: start: 20130603

REACTIONS (2)
  - Device difficult to use [Unknown]
  - No adverse event [Unknown]
